FAERS Safety Report 22124694 (Version 5)
Quarter: 2023Q2

REPORT INFORMATION
  Report Type: Spontaneous
  Country: US (occurrence: US)
  Receive Date: 20230322
  Receipt Date: 20230501
  Transmission Date: 20230722
  Serious: No
  Sender: FDA-Public Use
  Company Number: US-BIOGEN-2023BI01193752

PATIENT
  Age: 43 Year
  Sex: Male

DRUGS (1)
  1. TYSABRI [Suspect]
     Active Substance: NATALIZUMAB
     Indication: Multiple sclerosis
     Route: 050
     Dates: start: 20080310

REACTIONS (8)
  - Inappropriate schedule of product administration [Unknown]
  - Stress [Unknown]
  - Lethargy [Recovered/Resolved]
  - Neuropathy peripheral [Recovered/Resolved]
  - Anxiety [Unknown]
  - Depression [Unknown]
  - Dizziness [Recovered/Resolved]
  - Cognitive disorder [Unknown]

NARRATIVE: CASE EVENT DATE: 20230310
